FAERS Safety Report 6368589-3 (Version None)
Quarter: 2009Q3

REPORT INFORMATION
  Report Type: 
  Country: None (occurrence: None)
  Receive Date: 20090916
  Receipt Date: 20090904
  Transmission Date: 20100115
  Serious: Yes (Death, Hospitalization, Other)
  Sender: FDA-Public Use
  Company Number: 2009-03200

PATIENT
  Age: 68 Year
  Sex: Female
  Weight: 91.6 kg

DRUGS (9)
  1. VELCADE [Suspect]
     Indication: MULTIPLE MYELOMA
     Dosage: 1.3 MG/M2, INTRAVENOUS
     Route: 042
     Dates: start: 20090803, end: 20090806
  2. COREG [Concomitant]
  3. TRICOR [Concomitant]
  4. LACTULOSE [Concomitant]
  5. KEPPRA [Concomitant]
  6. NEPHRO-VITE RX (VITAMIN B NOS, FOLIC ACID) [Concomitant]
  7. NITROGLYCERIN [Concomitant]
  8. PHENERGAN HCL [Concomitant]
  9. PERCOCET [Concomitant]

REACTIONS (15)
  - ACUTE PULMONARY OEDEMA [None]
  - ANOXIC ENCEPHALOPATHY [None]
  - BACK PAIN [None]
  - BLOOD PRESSURE SYSTOLIC INCREASED [None]
  - CARDIO-RESPIRATORY ARREST [None]
  - CHEST PAIN [None]
  - HAEMATOCRIT DECREASED [None]
  - HAEMOGLOBIN DECREASED [None]
  - MALIGNANT HYPERTENSION [None]
  - RESPIRATORY FAILURE [None]
  - TACHYCARDIA [None]
  - TRANSIENT ISCHAEMIC ATTACK [None]
  - UNRESPONSIVE TO STIMULI [None]
  - VENTRICULAR DYSFUNCTION [None]
  - VENTRICULAR TACHYCARDIA [None]
